FAERS Safety Report 17372889 (Version 9)
Quarter: 2020Q1

REPORT INFORMATION
  Report Type: Spontaneous
  Country: PL (occurrence: PL)
  Receive Date: 20200205
  Receipt Date: 20200220
  Transmission Date: 20200409
  Serious: Yes (Life-Threatening, Hospitalization, Other)
  Sender: FDA-Public Use
  Company Number: PL-PFIZER INC-2020046646

PATIENT
  Age: 74 Year
  Sex: Male

DRUGS (14)
  1. AMIODARONE HCL [Suspect]
     Active Substance: AMIODARONE HYDROCHLORIDE
     Indication: ATRIAL FIBRILLATION
     Dosage: 200 MG, 1X/DAY
     Route: 042
  2. RIVAROXABAN [Concomitant]
     Active Substance: RIVAROXABAN
     Dosage: 20 MG, TOTAL
  3. AGOMELATINE [Interacting]
     Active Substance: AGOMELATINE
     Indication: DEPRESSION
     Dosage: 25 MG, DAILY (AT BEDTIME)
  4. POTASSIUM CHLORIDE. [Concomitant]
     Active Substance: POTASSIUM CHLORIDE
     Indication: ATRIAL FIBRILLATION
     Dosage: UNK
     Route: 042
  5. METOPROLOL. [Concomitant]
     Active Substance: METOPROLOL
     Dosage: UNK (INITIALLY USED INTRAVENOUSLY - THEN ORALLY)
     Route: 048
  6. KETOPROFEN. [Interacting]
     Active Substance: KETOPROFEN
     Indication: HEADACHE
     Dosage: UNK
  7. IBUPROFEN. [Interacting]
     Active Substance: IBUPROFEN
     Dosage: UNK
  8. CIPROFLOXACIN. [Interacting]
     Active Substance: CIPROFLOXACIN
     Indication: URINARY TRACT INFECTION
     Dosage: 500 MG, QD, AT BEDTIME, FILM COATED TABLET
  9. AGOMELATINE [Interacting]
     Active Substance: AGOMELATINE
     Indication: ANHEDONIA
  10. METOPROLOL. [Concomitant]
     Active Substance: METOPROLOL
     Dosage: UNK (INITIALLY USED INTRAVENOUSLY - THEN ORALLY)
     Route: 042
  11. PROPRANOLOL HYDROCHLORIDE. [Interacting]
     Active Substance: PROPRANOLOL HYDROCHLORIDE
     Dosage: 10 MG, 1X/DAY (2 X 10 MG/DAY)
  12. OMEPRAZOLE. [Interacting]
     Active Substance: OMEPRAZOLE
     Indication: PROPHYLAXIS
     Dosage: 40 MG, 1X/DAY
     Route: 048
  13. METAMIZOLE SALT NOT SPECIFIED [Interacting]
     Active Substance: METAMIZOLE
     Indication: HEADACHE
     Dosage: UNK
  14. PARACETAMOL [Interacting]
     Active Substance: ACETAMINOPHEN
     Indication: HEADACHE
     Dosage: UNK

REACTIONS (12)
  - Asthenia [Recovered/Resolved]
  - Product use in unapproved indication [Unknown]
  - Depression [Recovered/Resolved]
  - Anhedonia [Recovered/Resolved]
  - Drug ineffective [Unknown]
  - Hyperhidrosis [Recovered/Resolved]
  - Drug interaction [Unknown]
  - Headache [Recovered/Resolved]
  - Tachycardia [Recovered/Resolved]
  - Abdominal pain [Recovered/Resolved]
  - Diarrhoea [Recovered/Resolved]
  - Pain [Recovered/Resolved]
